FAERS Safety Report 4414038-1 (Version None)
Quarter: 2004Q3

REPORT INFORMATION
  Report Type: 
  Country: None (occurrence: None)
  Receive Date: 20040803
  Receipt Date: 20040406
  Transmission Date: 20050211
  Serious: Yes (Death, Hospitalization)
  Sender: FDA-Public Use
  Company Number: DE-GLAXOSMITHKLINE-B0329110A

PATIENT
  Age: 66 Year
  Sex: Male
  Weight: 74.8 kg

DRUGS (6)
  1. TOPOTECAN [Suspect]
     Dosage: 1MGM2 PER DAY
     Route: 042
     Dates: start: 20040315, end: 20040319
  2. CISPLATIN [Suspect]
     Dosage: 75MGM2 PER DAY
     Route: 042
     Dates: start: 20040319, end: 20040319
  3. RAMIPRIL [Concomitant]
  4. L-THYROXIN [Concomitant]
     Indication: HYPOTHYROIDISM
     Dosage: 25MG PER DAY
     Route: 048
  5. DIFLUCAN [Concomitant]
     Dosage: 200MG PER DAY
     Route: 048
     Dates: start: 20040216
  6. DEXAMETHASONE [Concomitant]
     Dosage: 1.5MG THREE TIMES PER DAY
     Route: 048
     Dates: start: 20040216

REACTIONS (3)
  - HEPATIC FAILURE [None]
  - LEUKOPENIA [None]
  - PYREXIA [None]
